FAERS Safety Report 7106502-1 (Version None)
Quarter: 2010Q4

REPORT INFORMATION
  Report Type: 
  Country: None (occurrence: None)
  Receive Date: 20101116
  Receipt Date: 20101109
  Transmission Date: 20110411
  Serious: Yes (Other)
  Sender: FDA-Public Use
  Company Number: AU-PFIZER INC-2010143158

PATIENT
  Sex: Male

DRUGS (1)
  1. EFFEXOR XR [Suspect]
     Dosage: 300 MG, UNK
     Dates: start: 20060101

REACTIONS (4)
  - DISTURBANCE IN SEXUAL AROUSAL [None]
  - PENILE SIZE REDUCED [None]
  - SEXUAL ABUSE [None]
  - TESTICULAR ATROPHY [None]
